FAERS Safety Report 6061172-9 (Version None)
Quarter: 2009Q1

REPORT INFORMATION
  Report Type: 
  Country: None (occurrence: None)
  Receive Date: 20090202
  Receipt Date: 20090121
  Transmission Date: 20090719
  Serious: Yes (Other)
  Sender: FDA-Public Use
  Company Number: GB-ASTRAZENECA-2009GB00295

PATIENT
  Age: 75 Year
  Sex: Female

DRUGS (1)
  1. MARCAIN STERIPAK [Suspect]
     Indication: OPEN REDUCTION OF FRACTURE
     Route: 037

REACTIONS (2)
  - DRUG EFFECT DELAYED [None]
  - DRUG INEFFECTIVE [None]
